FAERS Safety Report 9031356 (Version 1)
Quarter: 2013Q1

REPORT INFORMATION
  Report Type: Spontaneous
  Country: IT (occurrence: IT)
  Receive Date: 20130124
  Receipt Date: 20130124
  Transmission Date: 20140127
  Serious: Yes (Other)
  Sender: FDA-Public Use
  Company Number: PHHY2013IT005478

PATIENT
  Age: 76 Year
  Sex: Female

DRUGS (6)
  1. METFORMIN [Suspect]
     Dosage: 1 POSOLOGIC UNIT DAILY
     Route: 048
     Dates: start: 20111117, end: 20121116
  2. GLICLAZIDE [Suspect]
     Dosage: 1 POSOLOGICAL UNIT DAILY
     Route: 048
     Dates: start: 20111117, end: 20121116
  3. CELEBREX [Concomitant]
  4. LYRICA [Concomitant]
     Route: 048
  5. BEZALIP [Concomitant]
  6. CIBADREX [Concomitant]

REACTIONS (1)
  - Hypoglycaemia [Recovering/Resolving]
